FAERS Safety Report 23948893 (Version 1)
Quarter: 2024Q2

REPORT INFORMATION
  Report Type: Other
  Country: CA (occurrence: CA)
  Receive Date: 20240607
  Receipt Date: 20240607
  Transmission Date: 20240715
  Serious: Yes (Other)
  Sender: FDA-Public Use
  Company Number: CA-APOTEX-2024AP006850

PATIENT
  Age: 74 Year
  Sex: Female

DRUGS (3)
  1. ALBUTEROL [Suspect]
     Active Substance: ALBUTEROL
     Indication: Product used for unknown indication
     Dosage: 4 DOSAGE FORM
     Route: 065
  2. BUDESONIDE\FORMOTEROL FUMARATE [Concomitant]
     Active Substance: BUDESONIDE\FORMOTEROL FUMARATE
     Indication: Product used for unknown indication
     Dosage: UNK
     Route: 065
  3. SPIRIVA [Concomitant]
     Active Substance: TIOTROPIUM BROMIDE MONOHYDRATE
     Indication: Product used for unknown indication
     Dosage: 4 DOSAGE FORM
     Route: 065

REACTIONS (7)
  - Dyspnoea exertional [Unknown]
  - Fatigue [Unknown]
  - Increased bronchial secretion [Unknown]
  - Loss of personal independence in daily activities [Unknown]
  - Pulmonary congestion [Unknown]
  - Insomnia [Unknown]
  - Cough [Unknown]
